FAERS Safety Report 6501375-X (Version None)
Quarter: 2009Q4

REPORT INFORMATION
  Report Type: 
  Country: None (occurrence: None)
  Receive Date: 20091215
  Receipt Date: 20091215
  Transmission Date: 20100525
  Serious: Yes (Other)
  Sender: FDA-Public Use
  Company Number: None

PATIENT
  Age: 60 Year
  Sex: Male
  Weight: 72.5755 kg

DRUGS (1)
  1. PANTOPRAZOLE [Suspect]
     Indication: GASTROOESOPHAGEAL REFLUX DISEASE
     Dosage: 40 MG 1 DAILY PO
     Route: 048
     Dates: start: 20030405, end: 20091214

REACTIONS (3)
  - DRUG DEPENDENCE [None]
  - GASTRIC DISORDER [None]
  - GASTRIC PH DECREASED [None]
